FAERS Safety Report 19269638 (Version 1)
Quarter: 2021Q2

REPORT INFORMATION
  Report Type: Spontaneous
  Country: DE (occurrence: DE)
  Receive Date: 20210518
  Receipt Date: 20210518
  Transmission Date: 20210717
  Serious: Yes (Hospitalization, Other)
  Sender: FDA-Public Use
  Company Number: DE-SUN PHARMACEUTICAL INDUSTRIES LTD-2021RR-296659

PATIENT
  Age: 30 Year
  Sex: Female

DRUGS (4)
  1. FYREMADEL [Suspect]
     Active Substance: GANIRELIX ACETATE
     Indication: ASSISTED REPRODUCTIVE TECHNOLOGY
     Dosage: 0.25 MILLIGRAM, DAILY, 07.?11. ZT
     Route: 065
  2. OVITRELLE [Suspect]
     Active Substance: CHORIOGONADOTROPIN ALFA
     Indication: ASSISTED REPRODUCTIVE TECHNOLOGY
     Dosage: 250 MICROGRAM, DAILY, 12. ZT
     Route: 065
  3. GONAL?F [Suspect]
     Active Substance: FOLLITROPIN
     Dosage: 03.?05. ZT
     Route: 065
  4. GONAL?F [Suspect]
     Active Substance: FOLLITROPIN
     Indication: ASSISTED REPRODUCTIVE TECHNOLOGY
     Dosage: 150 INTERNATIONAL UNIT, DAILY, 06.?11. ZT
     Route: 065

REACTIONS (3)
  - Abdominal pain lower [Recovered/Resolved]
  - Post procedural haemorrhage [Recovered/Resolved]
  - Cardiovascular disorder [Recovered/Resolved]

NARRATIVE: CASE EVENT DATE: 20210412
